FAERS Safety Report 9215715 (Version 1)
Quarter: 2013Q2

REPORT INFORMATION
  Report Type: Spontaneous
  Country: BR (occurrence: BR)
  Receive Date: 20130408
  Receipt Date: 20130408
  Transmission Date: 20140414
  Serious: Yes (Other)
  Sender: FDA-Public Use
  Company Number: BR-AMGEN-BRASP2013023879

PATIENT
  Age: 65 Year
  Sex: Female
  Weight: 59 kg

DRUGS (2)
  1. ENBREL [Suspect]
     Indication: RHEUMATOID ARTHRITIS
     Dosage: 25 MG, 2X/WEEK
     Route: 058
     Dates: end: 201210
  2. HUMIRA [Suspect]
     Dosage: UNK
     Dates: start: 201210

REACTIONS (6)
  - Infarction [Unknown]
  - Hand deformity [Unknown]
  - Finger deformity [Unknown]
  - Musculoskeletal stiffness [Unknown]
  - Motor dysfunction [Unknown]
  - Drug ineffective [Unknown]
